FAERS Safety Report 4511922-5 (Version None)
Quarter: 2004Q4

REPORT INFORMATION
  Report Type: 
  Country: None (occurrence: None)
  Receive Date: 20041123
  Receipt Date: 20041108
  Transmission Date: 20050328
  Serious: Yes (Death)
  Sender: FDA-Public Use
  Company Number: 2004-BP-11414RO

PATIENT
  Age: 57 Year
  Sex: Female
  Weight: 56.8 kg

DRUGS (4)
  1. LITHIUM CARBONATE [Suspect]
     Indication: PROPHYLAXIS
     Dosage: 300 MG BID (300 MG, 2 IN 1 D), PO
     Route: 048
  2. DEXAMETHASONE [Suspect]
     Indication: RADICULOPATHY
     Dosage: TAPER:  32, 16, 8, 4MG OVER 4 D (4MG), PO
     Route: 048
     Dates: start: 20040719, end: 20040722
  3. SONATA [Concomitant]
  4. AMBIEN [Concomitant]

REACTIONS (4)
  - COMPLETED SUICIDE [None]
  - DROWNING [None]
  - INTERVERTEBRAL DISC OPERATION [None]
  - PSYCHOTIC DISORDER [None]
